FAERS Safety Report 12632700 (Version 2)
Quarter: 2016Q3

REPORT INFORMATION
  Report Type: Spontaneous
  Country: US (occurrence: US)
  Receive Date: 20160808
  Receipt Date: 20160808
  Transmission Date: 20161109
  Serious: No
  Sender: FDA-Public Use
  Company Number: US-BEH-2015056567

PATIENT
  Age: 56 Year
  Sex: Female
  Weight: 81 kg

DRUGS (22)
  1. HIZENTRA [Suspect]
     Active Substance: HUMAN IMMUNOGLOBULIN G
     Indication: SELECTIVE IGM IMMUNODEFICIENCY
     Route: 058
     Dates: start: 20120106
  2. ACETAMINOPHEN. [Concomitant]
     Active Substance: ACETAMINOPHEN
  3. LIDOCAINE. [Concomitant]
     Active Substance: LIDOCAINE
  4. VALIUM [Concomitant]
     Active Substance: DIAZEPAM
  5. CEFTIN [Concomitant]
     Active Substance: CEFUROXIME AXETIL
  6. SAVELLA [Concomitant]
     Active Substance: MILNACIPRAN HYDROCHLORIDE
  7. BYSTOLIC [Concomitant]
     Active Substance: NEBIVOLOL HYDROCHLORIDE
  8. VISTARIL [Concomitant]
     Active Substance: HYDROXYZINE PAMOATE
  9. SINGULAIR [Concomitant]
     Active Substance: MONTELUKAST SODIUM
  10. ALBUTEROL. [Concomitant]
     Active Substance: ALBUTEROL
     Dosage: INHAL SOLN
  11. PHENERGAN [Concomitant]
     Active Substance: PROMETHAZINE HYDROCHLORIDE
     Dosage: 50 MG/ML VIAL
  12. CYANOCOBALAMIN. [Concomitant]
     Active Substance: CYANOCOBALAMIN
     Dosage: 1000 MCG/ML
  13. EPI-PEN AUTOINJECTOR [Concomitant]
  14. DIPHENHYDRAMINE. [Concomitant]
     Active Substance: DIPHENHYDRAMINE
  15. IPRAT-ALBUT [Concomitant]
     Dosage: 0.5-3(2.5( MG/3 ML
  16. SKELAXIN [Concomitant]
     Active Substance: METAXALONE
  17. VITAMIN D3 [Concomitant]
     Active Substance: CHOLECALCIFEROL
  18. LEVAQUIN [Concomitant]
     Active Substance: LEVOFLOXACIN
  19. IBUPROFEN. [Concomitant]
     Active Substance: IBUPROFEN
  20. RANEXA [Concomitant]
     Active Substance: RANOLAZINE
  21. TORSEMIDE. [Concomitant]
     Active Substance: TORSEMIDE
  22. ULTRAM [Concomitant]
     Active Substance: TRAMADOL HYDROCHLORIDE

REACTIONS (1)
  - Infection [Recovered/Resolved]

NARRATIVE: CASE EVENT DATE: 20150922
